FAERS Safety Report 4744518-0 (Version None)
Quarter: 2005Q3

REPORT INFORMATION
  Report Type: 
  Country: None (occurrence: None)
  Receive Date: 20050805
  Receipt Date: 20050713
  Transmission Date: 20060218
  Serious: No
  Sender: FDA-Public Use
  Company Number: NHC 1306

PATIENT
  Sex: Male
  Weight: 36.2 kg

DRUGS (1)
  1. CORD BLOOD #DUCB4316 [Suspect]
     Indication: STEM CELL TRANSPLANT
     Dosage: 17.8 X 10 (8) NC ONE TIME USE TRANSPLANT PRODUCT
     Dates: start: 20050720

REACTIONS (1)
  - POOR QUALITY DRUG ADMINISTERED [None]
